FAERS Safety Report 24209981 (Version 1)
Quarter: 2024Q3

REPORT INFORMATION
  Report Type: Report from Study
  Country: US (occurrence: None)
  Receive Date: 20240814
  Receipt Date: 20240814
  Transmission Date: 20241017
  Serious: Yes (Hospitalization)
  Sender: ASTRAZENECA
  Company Number: 2024A133980

PATIENT
  Sex: Female
  Weight: 47 kg

DRUGS (2)
  1. TRUQAP [Suspect]
     Active Substance: CAPIVASERTIB
     Indication: Breast cancer female
     Dosage: 320.0MG AS REQUIRED
     Route: 048
     Dates: start: 20240401
  2. TRUQAP [Suspect]
     Active Substance: CAPIVASERTIB
     Indication: Metastases to liver
     Dosage: 320.0MG AS REQUIRED
     Route: 048
     Dates: start: 20240401

REACTIONS (4)
  - Small intestinal obstruction [Unknown]
  - Dehydration [Unknown]
  - Rash [Unknown]
  - Muscular weakness [Unknown]
